FAERS Safety Report 4850032-4 (Version None)
Quarter: 2005Q4

REPORT INFORMATION
  Report Type: 
  Country: None (occurrence: None)
  Receive Date: 20051123
  Receipt Date: 20041103
  Transmission Date: 20060501
  Serious: Yes (Other)
  Sender: FDA-Public Use
  Company Number: 2004089158

PATIENT
  Age: 66 Year
  Sex: Male
  Weight: 92.9874 kg

DRUGS (2)
  1. LIPITOR [Suspect]
     Indication: BLOOD CHOLESTEROL INCREASED
     Dosage: 10 MG (10 MG, 1 IN 1 D), ORAL
     Route: 048
     Dates: start: 20040701
  2. SYNTHROID [Concomitant]

REACTIONS (1)
  - HYPERTENSION [None]
